FAERS Safety Report 8743266 (Version 2)
Quarter: 2012Q4

REPORT INFORMATION
  Report Type: 
  Country: US (occurrence: US)
  Receive Date: 20120824
  Receipt Date: 20120926
  Transmission Date: 20130627
  Serious: Yes (Other)
  Sender: FDA-Public Use
  Company Number: US-PFIZER INC-2012204919

PATIENT
  Age: 54 Year
  Sex: Female
  Weight: 109 kg

DRUGS (11)
  1. EFFEXOR [Suspect]
     Indication: DEPRESSION
     Dosage: 150 mg, UNK
     Route: 048
     Dates: start: 2004
  2. EFFEXOR [Suspect]
     Dosage: 300 mg (two tablets of 150mg), 2x/day
     Route: 048
  3. EFFEXOR [Suspect]
     Dosage: 300 mg (two tablets of 150mg), daily
     Route: 048
  4. VENLAFAXINE HYDROCHLORIDE [Suspect]
     Indication: DEPRESSION
     Dosage: UNK
  5. COZAAR [Concomitant]
     Indication: HYPERTENSION
     Dosage: 100 mg, daily
  6. HYDROCHLOROTHIAZIDE [Concomitant]
     Indication: HYPERTENSION
     Dosage: 20 mg, daily
  7. OMEPRAZOLE [Concomitant]
     Indication: GASTROOESOPHAGEAL REFLUX DISEASE
     Dosage: 40 mg, UNK
  8. ASPIRIN [Concomitant]
     Dosage: 81 mg, daily
  9. VITAMIN D [Concomitant]
     Dosage: UNK
  10. CALCIUM [Concomitant]
     Dosage: UNK
  11. MULTIVITAMINS [Concomitant]
     Dosage: UNK

REACTIONS (5)
  - Diabetes mellitus [Not Recovered/Not Resolved]
  - Drug ineffective [Unknown]
  - Blood cholesterol abnormal [Unknown]
  - Thyroid disorder [Unknown]
  - Agitation [Unknown]
